FAERS Safety Report 4527891-8 (Version None)
Quarter: 2004Q4

REPORT INFORMATION
  Report Type: 
  Country: None (occurrence: None)
  Receive Date: 20041123
  Receipt Date: 20041018
  Transmission Date: 20050328
  Serious: Yes (Hospitalization)
  Sender: FDA-Public Use
  Company Number: US-JNJFOC-20041005763

PATIENT
  Age: 54 Year
  Sex: Male

DRUGS (1)
  1. RISPERDAL [Suspect]
     Dosage: INTRAMUSCULAR
     Route: 030

REACTIONS (1)
  - HYPONATRAEMIA [None]
